FAERS Safety Report 12404602 (Version 1)
Quarter: 2016Q2

REPORT INFORMATION
  Report Type: Spontaneous
  Country: JP (occurrence: JP)
  Receive Date: 20160525
  Receipt Date: 20160525
  Transmission Date: 20160815
  Serious: Yes (Hospitalization)
  Sender: FDA-Public Use
  Company Number: JP-JNJFOC-20160513675

PATIENT
  Age: 38 Year
  Sex: Female
  Weight: 55.3 kg

DRUGS (16)
  1. CABERGOLINE. [Concomitant]
     Active Substance: CABERGOLINE
     Indication: HYPERPROLACTINAEMIA
     Route: 048
     Dates: start: 2014, end: 2014
  2. RISPERDAL [Suspect]
     Active Substance: RISPERIDONE
     Indication: AFFECT LABILITY
     Route: 048
     Dates: start: 2014
  3. CABERGOLINE. [Concomitant]
     Active Substance: CABERGOLINE
     Indication: HYPERPROLACTINAEMIA
     Route: 048
     Dates: start: 2014
  4. SODIUM RABEPRAZOLE [Concomitant]
     Active Substance: RABEPRAZOLE SODIUM
     Route: 048
  5. LORAZEPAM. [Concomitant]
     Active Substance: LORAZEPAM
     Dosage: IRREGULAR INTAKE, 1-3 MG PER DAY
     Route: 048
  6. CABERGOLINE. [Concomitant]
     Active Substance: CABERGOLINE
     Indication: HYPERPROLACTINAEMIA
     Route: 048
     Dates: start: 2014, end: 2014
  7. CABERGOLINE. [Concomitant]
     Active Substance: CABERGOLINE
     Indication: HYPERPROLACTINAEMIA
     Route: 048
     Dates: start: 2014, end: 2014
  8. CABERGOLINE. [Concomitant]
     Active Substance: CABERGOLINE
     Indication: HYPERPROLACTINAEMIA
     Route: 048
     Dates: start: 2013, end: 2013
  9. METYRAPONE [Concomitant]
     Active Substance: METYRAPONE
     Indication: HYPERPROLACTINAEMIA
     Route: 048
     Dates: start: 2014, end: 2014
  10. METYRAPONE [Concomitant]
     Active Substance: METYRAPONE
     Indication: HYPERPROLACTINAEMIA
     Route: 048
     Dates: start: 2014
  11. METOCLOPRAMIDE. [Suspect]
     Active Substance: METOCLOPRAMIDE
     Indication: PRODUCT USED FOR UNKNOWN INDICATION
     Route: 065
     Dates: end: 2013
  12. FUROSEMIDE. [Concomitant]
     Active Substance: FUROSEMIDE
     Route: 065
  13. CARBAMAZEPINE. [Concomitant]
     Active Substance: CARBAMAZEPINE
     Indication: EPILEPSY
     Route: 048
  14. CABERGOLINE. [Concomitant]
     Active Substance: CABERGOLINE
     Indication: HYPERPROLACTINAEMIA
     Route: 048
     Dates: start: 2013, end: 2014
  15. METYRAPONE [Concomitant]
     Active Substance: METYRAPONE
     Indication: HYPERPROLACTINAEMIA
     Route: 048
     Dates: start: 2014, end: 2014
  16. RISPERDAL [Suspect]
     Active Substance: RISPERIDONE
     Indication: AFFECT LABILITY
     Route: 048
     Dates: end: 2013

REACTIONS (3)
  - Pituitary tumour [Unknown]
  - Off label use [Unknown]
  - Product use issue [Unknown]
